FAERS Safety Report 9356758 (Version 1)
Quarter: 2013Q2

REPORT INFORMATION
  Report Type: Report from Study
  Country: US (occurrence: US)
  Receive Date: 20130619
  Receipt Date: 20130619
  Transmission Date: 20140414
  Serious: Yes (Congenital Anomaly)
  Sender: FDA-Public Use
  Company Number: US-UCBSA-088658

PATIENT
  Sex: 0
  Weight: 3.4 kg

DRUGS (22)
  1. CIMZIA [Suspect]
     Indication: RHEUMATOID ARTHRITIS
     Route: 064
     Dates: start: 20120730, end: 20120827
  2. CIMZIA [Suspect]
     Indication: RHEUMATOID ARTHRITIS
     Route: 064
     Dates: start: 20120910, end: 20130430
  3. PRENATAL VITAMINS [Concomitant]
     Dosage: DOSE : 4 PILLS
     Route: 064
     Dates: start: 20120728, end: 20130430
  4. PROGESTERONE [Concomitant]
     Indication: PREGNANCY
     Route: 064
     Dates: start: 20120917, end: 20130430
  5. DAYQUIL [Concomitant]
     Indication: NASOPHARYNGITIS
     Dosage: DOSE : 6 PILLS
     Route: 064
     Dates: start: 20121015, end: 20121016
  6. DAYQUIL [Concomitant]
     Indication: NASOPHARYNGITIS
     Dosage: DOSE : 2 PILLS
     Route: 064
     Dates: start: 20121217, end: 20121219
  7. DAYQUIL [Concomitant]
     Indication: NASOPHARYNGITIS
     Route: 064
     Dates: start: 20130131, end: 20130203
  8. DAYQUIL [Concomitant]
     Indication: NASOPHARYNGITIS
     Dosage: DOSE : 2 PILLS
     Route: 064
     Dates: start: 20130131, end: 20130201
  9. DAYQUIL [Concomitant]
     Indication: NASOPHARYNGITIS
     Dosage: DOSE : 2 PILLS
     Route: 064
     Dates: start: 20130202, end: 20130203
  10. NYQUIL [Concomitant]
     Indication: HYPERSENSITIVITY
     Dosage: DOSE : 2 PILLS
     Route: 064
     Dates: start: 20121015, end: 20121016
  11. NYQUIL [Concomitant]
     Indication: NASOPHARYNGITIS
     Dosage: DOSE : 2 PILLS
     Route: 064
     Dates: start: 20121015, end: 20121016
  12. NYQUIL [Concomitant]
     Indication: HYPERSENSITIVITY
     Dosage: DOSE : 2 PILLS
     Route: 064
     Dates: start: 20121217, end: 20121218
  13. NYQUIL [Concomitant]
     Indication: NASOPHARYNGITIS
     Dosage: DOSE : 2 PILLS
     Route: 064
     Dates: start: 20121217, end: 20121218
  14. NYQUIL [Concomitant]
     Indication: HYPERSENSITIVITY
     Dosage: DOSE : 2 PILLS
     Route: 064
     Dates: start: 20130202, end: 20130203
  15. NYQUIL [Concomitant]
     Indication: NASOPHARYNGITIS
     Dosage: DOSE : 2 PILLS
     Route: 064
     Dates: start: 20130202, end: 20130203
  16. FLUZONE [Concomitant]
     Dosage: DOSE : 1 SHOT
     Route: 064
     Dates: start: 20121024, end: 20121024
  17. CLINDAMYCIN [Concomitant]
     Indication: ACNE
     Dosage: FREQUENCY : 3.5  WEEKLY
     Route: 064
     Dates: start: 20121028, end: 20121125
  18. CLOTRIMAZOLE [Concomitant]
     Indication: PITYRIASIS
     Route: 064
     Dates: start: 20130209, end: 20130210
  19. CORDRAN [Concomitant]
     Indication: PITYRIASIS
     Route: 064
     Dates: start: 20130218, end: 20130222
  20. LAMISIL [Concomitant]
     Indication: PITYRIASIS
     Route: 064
     Dates: start: 20130211, end: 20130217
  21. PEPCID AC [Concomitant]
     Dosage: DOSE : 1 PILL
     Route: 064
     Dates: start: 20130423, end: 20130429
  22. DHA [Concomitant]
     Route: 064
     Dates: start: 20120728, end: 20130430

REACTIONS (2)
  - Congenital renal cyst [Unknown]
  - Foetal exposure during pregnancy [Recovered/Resolved]
